FAERS Safety Report 23161160 (Version 1)
Quarter: 2023Q4

REPORT INFORMATION
  Report Type: Spontaneous
  Country: US (occurrence: None)
  Receive Date: 20231107
  Receipt Date: 20231107
  Transmission Date: 20240110
  Serious: No
  Sender: FDA-Public Use
  Company Number: None

PATIENT
  Age: 76 Year
  Sex: Female

DRUGS (1)
  1. COSENTYX [Suspect]
     Active Substance: SECUKINUMAB
     Indication: Psoriasis
     Dosage: OTHER FREQUENCY : FOR WEEK 3 AS DIRE;?
     Route: 058
     Dates: start: 202211

REACTIONS (6)
  - Urinary tract infection [None]
  - Bladder disorder [None]
  - Hypotension [None]
  - Pruritus [None]
  - Skin exfoliation [None]
  - Inappropriate schedule of product administration [None]
